FAERS Safety Report 18904583 (Version 1)
Quarter: 2021Q1

REPORT INFORMATION
  Report Type: Spontaneous
  Country: US (occurrence: US)
  Receive Date: 20210217
  Receipt Date: 20210217
  Transmission Date: 20210420
  Serious: No
  Sender: FDA-Public Use
  Company Number: US-009507513-2102USA000305

PATIENT
  Sex: Male

DRUGS (3)
  1. METHOTREXATE. [Suspect]
     Active Substance: METHOTREXATE
     Indication: ALOPECIA
     Dosage: UNK
  2. DECADRON [Suspect]
     Active Substance: DEXAMETHASONE
     Indication: ALOPECIA
     Dosage: UNK
  3. PREDNISONE. [Suspect]
     Active Substance: PREDNISONE
     Indication: ALOPECIA
     Dosage: UNK

REACTIONS (1)
  - Drug ineffective [Unknown]
